FAERS Safety Report 6308549-1 (Version None)
Quarter: 2009Q3

REPORT INFORMATION
  Report Type: 
  Country: None (occurrence: None)
  Receive Date: 20090813
  Receipt Date: 20090730
  Transmission Date: 20100115
  Serious: Yes (Other)
  Sender: FDA-Public Use
  Company Number: DE-MYLANLABS-2009S1013542

PATIENT
  Age: 2 Year
  Sex: Male
  Weight: 18 kg

DRUGS (1)
  1. LAMOTRIGIN DURA [Suspect]
     Indication: ACCIDENTAL EXPOSURE
     Route: 048
     Dates: start: 20090730, end: 20090730

REACTIONS (1)
  - ACCIDENTAL DRUG INTAKE BY CHILD [None]
